FAERS Safety Report 17832143 (Version 1)
Quarter: 2020Q2

REPORT INFORMATION
  Report Type: Spontaneous
  Country: US (occurrence: US)
  Receive Date: 20200528
  Receipt Date: 20200528
  Transmission Date: 20200714
  Serious: No
  Sender: FDA-Public Use
  Company Number: US-ROCHE-2531504

PATIENT
  Age: 46 Year
  Sex: Female
  Weight: 65.83 kg

DRUGS (14)
  1. OCREVUS [Suspect]
     Active Substance: OCRELIZUMAB
     Indication: RELAPSING-REMITTING MULTIPLE SCLEROSIS
     Route: 042
     Dates: start: 20190701
  2. OCREVUS [Suspect]
     Active Substance: OCRELIZUMAB
     Route: 042
     Dates: start: 20171011
  3. OXCARBAZEPINE. [Concomitant]
     Active Substance: OXCARBAZEPINE
     Dosage: TAKES 1/2 600 MG TABLET 4 TIMES DAILY
     Route: 048
  4. CALCIUM [Concomitant]
     Active Substance: CALCIUM
     Route: 048
  5. DALFAMPRIDINE. [Concomitant]
     Active Substance: DALFAMPRIDINE
     Route: 048
  6. GABAPENTIN. [Concomitant]
     Active Substance: GABAPENTIN
     Indication: MUSCULOSKELETAL PAIN
  7. OCREVUS [Suspect]
     Active Substance: OCRELIZUMAB
     Route: 042
     Dates: start: 20180412
  8. GABAPENTIN. [Concomitant]
     Active Substance: GABAPENTIN
     Indication: TRIGEMINAL NEURALGIA
     Dosage: WEANING DOSE
     Route: 048
  9. OCREVUS [Suspect]
     Active Substance: OCRELIZUMAB
     Route: 042
     Dates: start: 20170927
  10. OCREVUS [Suspect]
     Active Substance: OCRELIZUMAB
     Route: 042
     Dates: start: 20190702
  11. OXTELLAR XR [Concomitant]
     Active Substance: OXCARBAZEPINE
     Indication: TRIGEMINAL NEURALGIA
     Route: 048
     Dates: start: 201907
  12. OCREVUS [Suspect]
     Active Substance: OCRELIZUMAB
     Dosage: NO
     Route: 042
     Dates: start: 20161001, end: 201804
  13. OCREVUS [Suspect]
     Active Substance: OCRELIZUMAB
     Route: 042
     Dates: start: 20200106
  14. OXCARBAZEPINE. [Concomitant]
     Active Substance: OXCARBAZEPINE
     Indication: TRIGEMINAL NEURALGIA
     Route: 048
     Dates: start: 201907

REACTIONS (3)
  - Lymphocyte count abnormal [Not Recovered/Not Resolved]
  - Fatigue [Not Recovered/Not Resolved]
  - Throat irritation [Recovered/Resolved]

NARRATIVE: CASE EVENT DATE: 201804
